FAERS Safety Report 8648172 (Version 2)
Quarter: 2013Q2

REPORT INFORMATION
  Report Type: Report from Study
  Country: MX (occurrence: MX)
  Receive Date: 20120703
  Receipt Date: 20130430
  Transmission Date: 20140414
  Serious: Yes (Death, Hospitalization, Other)
  Sender: FDA-Public Use
  Company Number: PHHY2012MX056466

PATIENT
  Age: 57 Year
  Sex: Male

DRUGS (4)
  1. ONBREZ [Suspect]
     Indication: LUNG NEOPLASM MALIGNANT
     Dosage: 150 UG, QD
     Dates: start: 201203, end: 20120613
  2. ONBREZ [Suspect]
     Indication: OFF LABEL USE
  3. SPIRIVA [Concomitant]
     Dosage: UNK
     Dates: start: 201203
  4. DABIGATRAN [Concomitant]
     Dosage: UNK
     Dates: start: 201203

REACTIONS (1)
  - Myocardial infarction [Fatal]
